FAERS Safety Report 4991729-5 (Version None)
Quarter: 2006Q2

REPORT INFORMATION
  Report Type: 
  Country: None (occurrence: None)
  Receive Date: 20060504
  Receipt Date: 20060428
  Transmission Date: 20061013
  Serious: Yes (Other)
  Sender: FDA-Public Use
  Company Number: J200601209

PATIENT
  Age: 51 Year

DRUGS (3)
  1. SAWACILLIN [Suspect]
     Route: 048
  2. LANSOPRAZOLE [Suspect]
     Dosage: 60MG PER DAY
     Route: 048
  3. KLARICID [Suspect]
     Route: 048

REACTIONS (2)
  - PYREXIA [None]
  - STEVENS-JOHNSON SYNDROME [None]
